FAERS Safety Report 25813088 (Version 1)
Quarter: 2025Q3

REPORT INFORMATION
  Report Type: Spontaneous
  Country: US (occurrence: US)
  Receive Date: 20250917
  Receipt Date: 20250917
  Transmission Date: 20251021
  Serious: No
  Sender: BRISTOL-MYERS SQUIBB COMPANY
  Company Number: US-BRISTOL-MYERS SQUIBB COMPANY-2025-128156

PATIENT
  Age: 34 Year
  Sex: Female

DRUGS (1)
  1. SOTYKTU [Suspect]
     Active Substance: DEUCRAVACITINIB
     Indication: Psoriasis
     Dates: start: 202409

REACTIONS (3)
  - Folliculitis [Recovered/Resolved]
  - Staphylococcal infection [Unknown]
  - Pustule [Unknown]

NARRATIVE: CASE EVENT DATE: 20250301
